FAERS Safety Report 9882801 (Version 2)
Quarter: 2014Q1

REPORT INFORMATION
  Report Type: Spontaneous
  Country: BR (occurrence: BR)
  Receive Date: 20140207
  Receipt Date: 20140207
  Transmission Date: 20141002
  Serious: Yes (Death, Hospitalization)
  Sender: FDA-Public Use
  Company Number: BR-ASTRAZENECA-2013SE93205

PATIENT
  Age: 21385 Day
  Sex: Female
  Weight: 90 kg

DRUGS (3)
  1. SEROQUEL [Suspect]
     Indication: BIPOLAR DISORDER
     Route: 048
  2. SEVERAL MEDICATIONS [Concomitant]
  3. HALDOL [Concomitant]
     Route: 048

REACTIONS (6)
  - Septic shock [Fatal]
  - Psychotic disorder [Unknown]
  - Gastrointestinal disorder [Recovered/Resolved]
  - Pneumonia [Not Recovered/Not Resolved]
  - Mania [Unknown]
  - Hallucination [Unknown]
